FAERS Safety Report 6834238-0 (Version None)
Quarter: 2010Q3

REPORT INFORMATION
  Report Type: 
  Country: None (occurrence: None)
  Receive Date: 20100712
  Receipt Date: 20100707
  Transmission Date: 20110219
  Serious: Yes (Life-Threatening, Hospitalization)
  Sender: FDA-Public Use
  Company Number: JP-BRISTOL-MYERS SQUIBB COMPANY-13900899

PATIENT
  Age: 60 Year
  Sex: Male

DRUGS (9)
  1. BARACLUDE [Suspect]
     Indication: HEPATITIS B
     Route: 048
     Dates: start: 20070425, end: 20070731
  2. INTRON A [Concomitant]
     Route: 058
     Dates: start: 19910101
  3. URSO 250 [Concomitant]
     Route: 048
     Dates: start: 20070326
  4. NU-LOTAN [Concomitant]
     Route: 048
     Dates: start: 20021101
  5. SELBEX [Concomitant]
     Route: 048
     Dates: start: 20021101
  6. VITAMEDIN [Concomitant]
     Route: 048
     Dates: start: 20060301
  7. LENDORMIN [Concomitant]
     Route: 048
     Dates: start: 20021101
  8. FERON [Concomitant]
     Route: 041
     Dates: start: 19911201
  9. AMLODIN [Concomitant]
     Route: 048
     Dates: start: 20070801

REACTIONS (1)
  - HEPATIC NEOPLASM MALIGNANT [None]
